FAERS Safety Report 7909091-4 (Version None)
Quarter: 2011Q4

REPORT INFORMATION
  Report Type: 
  Country: None (occurrence: None)
  Receive Date: 20111111
  Receipt Date: 20111101
  Transmission Date: 20120403
  Serious: Yes (Disabling)
  Sender: FDA-Public Use
  Company Number: GB-ACTELION-A-CH2011-56332

PATIENT
  Age: 42 Year
  Sex: Male

DRUGS (6)
  1. TRACLEER [Suspect]
     Indication: PULMONARY ARTERIAL HYPERTENSION
     Dosage: 125 MG, UNK
     Route: 048
     Dates: start: 20090401, end: 20110401
  2. FUROSEMIDE [Concomitant]
     Dosage: UNK
     Dates: start: 20000101
  3. SILDENAFIL [Concomitant]
     Dosage: UNK
     Dates: start: 20080101
  4. SPIRONOLACTONE [Concomitant]
     Dosage: UNK
     Dates: start: 20000101
  5. INSULIN [Concomitant]
  6. ALLOPURINOL [Concomitant]
     Dosage: UNK
     Dates: start: 20000101

REACTIONS (1)
  - NEUROPATHY PERIPHERAL [None]
